FAERS Safety Report 17256288 (Version 1)
Quarter: 2020Q1

REPORT INFORMATION
  Report Type: Spontaneous
  Country: LT (occurrence: LT)
  Receive Date: 20200110
  Receipt Date: 20200110
  Transmission Date: 20200409
  Serious: Yes (Other)
  Sender: FDA-Public Use
  Company Number: LT-TEVA-2020-LT-1165227

PATIENT
  Sex: Female

DRUGS (2)
  1. PACLITAXEL. [Suspect]
     Active Substance: PACLITAXEL
     Indication: UVEAL MELANOMA
     Dosage: UNK
     Route: 065
     Dates: start: 201905
  2. CARBOPLATIN. [Suspect]
     Active Substance: CARBOPLATIN
     Indication: UVEAL MELANOMA
     Dosage: UNK
     Route: 065
     Dates: start: 201905

REACTIONS (1)
  - Metastases to central nervous system [Unknown]
